FAERS Safety Report 6630323-7 (Version None)
Quarter: 2010Q1

REPORT INFORMATION
  Report Type: 
  Country: None (occurrence: None)
  Receive Date: 20100311
  Receipt Date: 20100308
  Transmission Date: 20100710
  Serious: Yes (Death, Hospitalization, Other)
  Sender: FDA-Public Use
  Company Number: PHEH2008US00987

PATIENT
  Sex: Female

DRUGS (36)
  1. AREDIA [Suspect]
     Indication: METASTASES TO BONE
     Dosage: 90 MG, QMO
     Route: 042
  2. ZOMETA [Suspect]
     Indication: METASTASES TO BONE
     Dosage: 4 MG, QMO
     Route: 042
  3. CHEMOTHERAPEUTICS NOS [Concomitant]
  4. DOXIL [Concomitant]
  5. NEXIUM [Concomitant]
     Dosage: 20 MG, BID
     Route: 048
  6. COREG [Concomitant]
     Dosage: 6.25 MG, BID
     Route: 048
  7. ALTACE [Concomitant]
     Dosage: 2.5 MG, QD
     Route: 048
  8. TYLENOL (CAPLET) [Concomitant]
  9. MULTI-VITAMINS [Concomitant]
  10. VITAMIN A [Concomitant]
  11. VITAMIN B COMPLEX CAP [Concomitant]
  12. VITAMIN B6 [Concomitant]
  13. VITAMIN D [Concomitant]
  14. VITAMIN E [Concomitant]
  15. BABY ASPIRIN [Concomitant]
  16. LIPITOR [Concomitant]
  17. GEMZAR [Concomitant]
  18. LEVAQUIN [Concomitant]
  19. ARIMIDEX [Concomitant]
  20. ALEVE [Concomitant]
  21. NASONEX [Concomitant]
  22. CELEBREX [Concomitant]
  23. ATIVAN [Concomitant]
  24. NEURONTIN [Concomitant]
  25. AVELOX [Concomitant]
  26. FLONASE [Concomitant]
  27. HERCEPTIN [Concomitant]
  28. TYKERB [Concomitant]
     Indication: BREAST CANCER
     Route: 048
  29. BEXTRA [Concomitant]
     Dosage: 10 MG, BID
     Route: 048
  30. ASPIRIN [Concomitant]
     Dosage: 325 MG, QD
     Route: 048
  31. ADRIAMYCIN PFS [Concomitant]
     Dosage: UNK
  32. TAXOL [Concomitant]
     Dosage: UNK
  33. TAMOXIFEN CITRATE [Concomitant]
     Dosage: UNK
  34. ANASTROZOLE [Concomitant]
     Dosage: UNK
  35. NAVELBINE [Concomitant]
     Dosage: UNK
  36. FULVESTRANT [Suspect]
     Dosage: 250 MG, QD
     Route: 048

REACTIONS (51)
  - ABDOMINAL PAIN [None]
  - ANHEDONIA [None]
  - ANXIETY [None]
  - BACK PAIN [None]
  - BRONCHITIS [None]
  - CARDIOMEGALY [None]
  - CHEST PAIN [None]
  - CHRONIC OBSTRUCTIVE PULMONARY DISEASE [None]
  - CONVULSION [None]
  - DENTURE WEARER [None]
  - DERMAL CYST [None]
  - DEVICE RELATED INFECTION [None]
  - DISABILITY [None]
  - DIZZINESS [None]
  - DYSPNOEA [None]
  - ECONOMIC PROBLEM [None]
  - ESCHERICHIA SEPSIS [None]
  - FEBRILE CONVULSION [None]
  - GASTROINTESTINAL HAEMORRHAGE [None]
  - GASTROOESOPHAGEAL REFLUX DISEASE [None]
  - GENERAL PHYSICAL HEALTH DETERIORATION [None]
  - HEADACHE [None]
  - HEART RATE IRREGULAR [None]
  - HYPERCHOLESTEROLAEMIA [None]
  - HYPOAESTHESIA [None]
  - HYPOTENSION [None]
  - IMMUNODEFICIENCY [None]
  - IMMUNOGLOBULINS DECREASED [None]
  - INFECTION [None]
  - INJURY [None]
  - ISCHAEMIC CARDIOMYOPATHY [None]
  - MALIGNANT NEOPLASM PROGRESSION [None]
  - METASTASES TO BONE [None]
  - METASTASES TO CENTRAL NERVOUS SYSTEM [None]
  - METASTASES TO LIVER [None]
  - METASTASES TO LUNG [None]
  - MULTIPLE INJURIES [None]
  - NAUSEA [None]
  - OEDEMA PERIPHERAL [None]
  - OSTEONECROSIS [None]
  - PAIN [None]
  - PAIN IN JAW [None]
  - PLEURODESIS [None]
  - PNEUMOTHORAX [None]
  - PRODUCTIVE COUGH [None]
  - SINUSITIS [None]
  - SOMNOLENCE [None]
  - THORACOSTOMY [None]
  - TOOTH EXTRACTION [None]
  - UPPER GASTROINTESTINAL HAEMORRHAGE [None]
  - WEIGHT DECREASED [None]
